FAERS Safety Report 6073953-6 (Version None)
Quarter: 2009Q1

REPORT INFORMATION
  Report Type: 
  Country: None (occurrence: None)
  Receive Date: 20090211
  Receipt Date: 20090203
  Transmission Date: 20090719
  Serious: Yes (Disabling, Other)
  Sender: FDA-Public Use
  Company Number: PHEH2008US10250

PATIENT
  Sex: Female
  Weight: 57.143 kg

DRUGS (1)
  1. RECLAST [Suspect]
     Indication: OSTEOPOROSIS POSTMENOPAUSAL
     Dosage: 5 MG, ONCE/SINGLE
     Dates: start: 20080702, end: 20080702

REACTIONS (26)
  - ACTIVITIES OF DAILY LIVING IMPAIRED [None]
  - ACUTE PHASE REACTION [None]
  - ARTHRALGIA [None]
  - BACK PAIN [None]
  - BONE PAIN [None]
  - BURSITIS [None]
  - GAIT DISTURBANCE [None]
  - GROIN PAIN [None]
  - HYPOAESTHESIA [None]
  - JOINT CREPITATION [None]
  - JOINT LOCK [None]
  - JOINT RANGE OF MOTION DECREASED [None]
  - JOINT STIFFNESS [None]
  - JOINT SWELLING [None]
  - MOBILITY DECREASED [None]
  - MOVEMENT DISORDER [None]
  - MUSCULAR WEAKNESS [None]
  - MYALGIA [None]
  - MYOSITIS [None]
  - OSTEOARTHRITIS [None]
  - PAIN [None]
  - RADICULOPATHY [None]
  - SCIATICA [None]
  - SPONDYLOLISTHESIS [None]
  - WALKING AID USER [None]
  - WEIGHT INCREASED [None]
